FAERS Safety Report 15580502 (Version 2)
Quarter: 2018Q4

REPORT INFORMATION
  Report Type: Report from Study
  Country: US (occurrence: US)
  Receive Date: 20181102
  Receipt Date: 20181115
  Transmission Date: 20190205
  Serious: Yes (Hospitalization)
  Sender: FDA-Public Use
  Company Number: US-ACTELION-A-US2018-177964

PATIENT
  Age: 49 Year
  Sex: Female
  Weight: 87.98 kg

DRUGS (3)
  1. SILDENAFIL CITRATE. [Concomitant]
     Active Substance: SILDENAFIL CITRATE
  2. OPSUMIT [Suspect]
     Active Substance: MACITENTAN
     Indication: PULMONARY ARTERIAL HYPERTENSION
     Dosage: 10 MG, QD
     Route: 048
  3. UPTRAVI [Suspect]
     Active Substance: SELEXIPAG
     Indication: PULMONARY ARTERIAL HYPERTENSION
     Dosage: 400 MCG, BID
     Route: 048

REACTIONS (13)
  - Dizziness [Unknown]
  - Hypotension [Unknown]
  - Cough [Unknown]
  - Adverse event [Unknown]
  - Nasopharyngitis [Unknown]
  - Drug intolerance [Unknown]
  - Hormone level abnormal [Unknown]
  - Chest discomfort [Unknown]
  - Feeling hot [Unknown]
  - Dyspnoea [Unknown]
  - Tremor [Unknown]
  - Headache [Not Recovered/Not Resolved]
  - Sneezing [Unknown]
